FAERS Safety Report 13340827 (Version 3)
Quarter: 2019Q1

REPORT INFORMATION
  Report Type: Spontaneous
  Country: NO (occurrence: NO)
  Receive Date: 20170316
  Receipt Date: 20190225
  Transmission Date: 20190417
  Serious: Yes (Other)
  Sender: FDA-Public Use
  Company Number: NO-SUN PHARMACEUTICAL INDUSTRIES LTD-2017R1-135309

PATIENT
  Age: 35 Year
  Sex: Male

DRUGS (12)
  1. VINCRISTINE [Suspect]
     Active Substance: VINCRISTINE
     Indication: NON-HODGKIN^S LYMPHOMA
     Dosage: UNK
     Route: 042
  2. DAUNORUBICINE [Suspect]
     Active Substance: DAUNORUBICIN
     Indication: NON-HODGKIN^S LYMPHOMA
     Dosage: UNK
     Route: 042
  3. 6-MERCAPTOPURINE [Suspect]
     Active Substance: MERCAPTOPURINE
     Indication: NON-HODGKIN^S LYMPHOMA
     Dosage: UNK
     Route: 048
  4. PREDNISONE. [Suspect]
     Active Substance: PREDNISONE
     Dosage: UNK
     Route: 037
  5. DOXORUBICIN [Suspect]
     Active Substance: DOXORUBICIN
     Indication: NON-HODGKIN^S LYMPHOMA
     Dosage: UNK
     Route: 042
  6. METHOTREXATE. [Suspect]
     Active Substance: METHOTREXATE
     Dosage: UNK
     Route: 037
  7. PREDNISONE. [Suspect]
     Active Substance: PREDNISONE
     Indication: NON-HODGKIN^S LYMPHOMA
     Dosage: UNK
     Route: 048
  8. L-ASPARAGINASE [Suspect]
     Active Substance: ASPARAGINASE
     Indication: NON-HODGKIN^S LYMPHOMA
     Dosage: UNK
     Route: 042
  9. METHOTREXATE. [Suspect]
     Active Substance: METHOTREXATE
     Indication: NON-HODGKIN^S LYMPHOMA
     Dosage: UNK
     Route: 042
  10. 6-THIOGUANINE [Suspect]
     Active Substance: THIOGUANINE
     Indication: NON-HODGKIN^S LYMPHOMA
     Dosage: UNK
     Route: 042
  11. CYTARABINE. [Suspect]
     Active Substance: CYTARABINE
     Indication: NON-HODGKIN^S LYMPHOMA
     Dosage: UNK
     Route: 037
  12. CYCLOPHOSPHAMIDE. [Suspect]
     Active Substance: CYCLOPHOSPHAMIDE
     Indication: NON-HODGKIN^S LYMPHOMA
     Dosage: UNK
     Route: 042

REACTIONS (2)
  - Haematotoxicity [Unknown]
  - Febrile neutropenia [Unknown]
